FAERS Safety Report 17949762 (Version 1)
Quarter: 2020Q2

REPORT INFORMATION
  Report Type: Spontaneous
  Country: US (occurrence: US)
  Receive Date: 20200626
  Receipt Date: 20200626
  Transmission Date: 20200714
  Serious: No
  Sender: FDA-Public Use
  Company Number: US-PFIZER INC-2020244920

PATIENT
  Age: 29 Year
  Sex: Female

DRUGS (3)
  1. XELJANZ [Suspect]
     Active Substance: TOFACITINIB CITRATE
     Indication: LICHEN PLANUS
  2. XELJANZ [Suspect]
     Active Substance: TOFACITINIB CITRATE
     Indication: ALOPECIA AREATA
     Dosage: 15 MG, DAILY (5 MG EVERY MORNING AND 10 MG EVERY NIGHT AT BEDTIME)
  3. XELJANZ [Suspect]
     Active Substance: TOFACITINIB CITRATE
     Indication: HAIR GROWTH ABNORMAL
     Dosage: 5 MG, 3X/DAY
     Dates: start: 201905

REACTIONS (4)
  - Alopecia [Unknown]
  - Drug effective for unapproved indication [Unknown]
  - Off label use [Unknown]
  - Product use in unapproved indication [Unknown]
